FAERS Safety Report 6065162-1 (Version None)
Quarter: 2009Q1

REPORT INFORMATION
  Report Type: 
  Country: None (occurrence: None)
  Receive Date: 20090204
  Receipt Date: 20090129
  Transmission Date: 20090719
  Serious: Yes (Hospitalization)
  Sender: FDA-Public Use
  Company Number: US-BAYER-200814571BCC

PATIENT
  Age: 47 Year
  Sex: Male
  Weight: 168 kg

DRUGS (2)
  1. ALEVE [Suspect]
     Indication: TOOTHACHE
     Dosage: TOTAL DAILY DOSE: 440 MG  UNIT DOSE: 220 MG
     Dates: start: 20081121
  2. PENICILLIN [Concomitant]

REACTIONS (1)
  - SWELLING FACE [None]
